FAERS Safety Report 8500065-1 (Version None)
Quarter: 2012Q3

REPORT INFORMATION
  Report Type: 
  Country: None (occurrence: None)
  Receive Date: 20120710
  Receipt Date: 20120627
  Transmission Date: 20120928
  Serious: Yes (Hospitalization, Other)
  Sender: FDA-Public Use
  Company Number: JP-ASTRAZENECA-2012SE46452

PATIENT
  Age: 47 Year
  Sex: Female

DRUGS (5)
  1. OMEPRAZOLE [Suspect]
     Route: 048
     Dates: start: 20100514
  2. ACTONEL [Suspect]
     Route: 048
     Dates: start: 20081209
  3. REMICADE [Suspect]
     Indication: RHEUMATOID ARTHRITIS
     Route: 042
     Dates: start: 20090513
  4. REMICADE [Suspect]
     Route: 042
     Dates: start: 20120321, end: 20120321
  5. METHOTREXATE [Suspect]
     Route: 048
     Dates: start: 20081209

REACTIONS (1)
  - RENAL CANCER [None]
